FAERS Safety Report 12656627 (Version 1)
Quarter: 2016Q3

REPORT INFORMATION
  Report Type: Spontaneous
  Country: US (occurrence: US)
  Receive Date: 20160816
  Receipt Date: 20160816
  Transmission Date: 20161109
  Serious: No
  Sender: FDA-Public Use
  Company Number: US-PERRIGO-15US013495

PATIENT
  Sex: Female

DRUGS (4)
  1. LORATADINE. [Suspect]
     Active Substance: LORATADINE
     Indication: HYPERSENSITIVITY
     Dosage: 10 MG, QD
     Route: 048
     Dates: start: 20151008
  2. LORATADINE. [Suspect]
     Active Substance: LORATADINE
     Indication: RHINORRHOEA
  3. KLONOPIN [Concomitant]
     Active Substance: CLONAZEPAM
     Indication: PRODUCT USED FOR UNKNOWN INDICATION
     Dosage: UNK
     Route: 065
  4. LORATADINE. [Suspect]
     Active Substance: LORATADINE
     Indication: SNEEZING

REACTIONS (5)
  - Psychomotor hyperactivity [Unknown]
  - Urticaria [Unknown]
  - Swelling face [Unknown]
  - Confusional state [Unknown]
  - Mania [Unknown]

NARRATIVE: CASE EVENT DATE: 201511
